FAERS Safety Report 7208327-5 (Version None)
Quarter: 2010Q4

REPORT INFORMATION
  Report Type: 
  Country: None (occurrence: None)
  Receive Date: 20101230
  Receipt Date: 20101230
  Transmission Date: 20110411
  Serious: Yes (Other)
  Sender: FDA-Public Use
  Company Number: None

PATIENT
  Age: 37 Year
  Sex: Female
  Weight: 68.0396 kg

DRUGS (1)
  1. IMIGUIMOD CREAM 0.25G FOUGERA [Suspect]
     Dosage: THIN LAYER 3 X WEEK
     Dates: start: 20041101, end: 20101218

REACTIONS (8)
  - AMENORRHOEA [None]
  - BURNING SENSATION [None]
  - DECREASED APPETITE [None]
  - DIARRHOEA [None]
  - FATIGUE [None]
  - INFLUENZA LIKE ILLNESS [None]
  - PRODUCT SUBSTITUTION ISSUE [None]
  - SKIN EXFOLIATION [None]
